FAERS Safety Report 15918183 (Version 1)
Quarter: 2019Q1

REPORT INFORMATION
  Report Type: Spontaneous
  Country: US (occurrence: US)
  Receive Date: 20190205
  Receipt Date: 20190205
  Transmission Date: 20190417
  Serious: No
  Sender: FDA-Public Use
  Company Number: US-ALKERMES INC.-ALK-2019-000441

PATIENT
  Age: 55 Year
  Sex: Male

DRUGS (1)
  1. VIVITROL [Suspect]
     Active Substance: NALTREXONE
     Indication: ALCOHOL USE DISORDER
     Dosage: 380 MG, QMO
     Route: 030
     Dates: start: 201808

REACTIONS (1)
  - Arthropathy [Not Recovered/Not Resolved]
